FAERS Safety Report 11205305 (Version 1)
Quarter: 2015Q2

REPORT INFORMATION
  Report Type: Report from Study
  Country: ES (occurrence: ES)
  Receive Date: 20150622
  Receipt Date: 20150622
  Transmission Date: 20150821
  Serious: Yes (Other)
  Sender: FDA-Public Use
  Company Number: ES-JNJFOC-20150613423

PATIENT

DRUGS (2)
  1. OLYSIO [Suspect]
     Active Substance: SIMEPREVIR
     Indication: HEPATITIS C
     Route: 048
  2. SOFOSBUVIR [Suspect]
     Active Substance: SOFOSBUVIR
     Indication: HEPATITIS C
     Route: 048

REACTIONS (6)
  - Hepatic encephalopathy [Unknown]
  - Urinary tract infection [Unknown]
  - Asthenia [Unknown]
  - Headache [Unknown]
  - Hyperbilirubinaemia [Unknown]
  - Rash [Unknown]
